FAERS Safety Report 5491650-2 (Version None)
Quarter: 2007Q4

REPORT INFORMATION
  Report Type: 
  Country: None (occurrence: None)
  Receive Date: 20071018
  Receipt Date: 20071018
  Transmission Date: 20080405
  Serious: No
  Sender: FDA-Public Use
  Company Number: None

PATIENT
  Age: 41 Year
  Sex: Female

DRUGS (7)
  1. TERBINAFINE HYDROCHLORIDE [Suspect]
     Dates: start: 20050320, end: 20050420
  2. LEVOXYL [Concomitant]
  3. PROTONIX [Concomitant]
  4. PHENERGAN HCL [Concomitant]
  5. ACYCLOVIR [Concomitant]
  6. WELLBUTRIN [Concomitant]
  7. ECHINACEA [Concomitant]

REACTIONS (7)
  - ACUTE HEPATIC FAILURE [None]
  - ANTINUCLEAR ANTIBODY POSITIVE [None]
  - AUTOIMMUNE HEPATITIS [None]
  - HAEMORRHAGE [None]
  - INTERNATIONAL NORMALISED RATIO INCREASED [None]
  - LIVER DISORDER [None]
  - ORAL HERPES [None]
